FAERS Safety Report 8450300-3 (Version None)
Quarter: 2012Q2

REPORT INFORMATION
  Report Type: 
  Country: None (occurrence: None)
  Receive Date: 20120620
  Receipt Date: 20120608
  Transmission Date: 20120825
  Serious: Yes (Other)
  Sender: FDA-Public Use
  Company Number: JP-PFIZER INC-2011165800

PATIENT
  Age: 59 Year
  Sex: Female
  Weight: 56 kg

DRUGS (40)
  1. IRINOTECAN HCL [Suspect]
     Dosage: 180 MG/BODY (117.6 MG/M2)
     Route: 041
     Dates: start: 20100922, end: 20100922
  2. IRINOTECAN HCL [Suspect]
     Dosage: UNK
     Route: 041
     Dates: start: 20110127, end: 20110127
  3. FLUOROURACIL [Suspect]
     Indication: COLORECTAL CANCER
     Dosage: 500 MG/BODY (326.8 MG/M2)
     Route: 040
     Dates: start: 20100816, end: 20100816
  4. FLUOROURACIL [Suspect]
     Dosage: UNK
     Route: 041
     Dates: start: 20100922, end: 20100922
  5. CONCENTRATED RED CELLS [Concomitant]
     Dosage: UNK
     Dates: start: 20110513, end: 20110514
  6. IRINOTECAN HCL [Suspect]
     Indication: COLORECTAL CANCER
     Dosage: 200 MG/BODY (130.7 MG/M2)
     Route: 041
     Dates: start: 20100816, end: 20100816
  7. IRINOTECAN HCL [Suspect]
     Dosage: UNK
     Route: 041
     Dates: start: 20110218, end: 20110218
  8. FLUOROURACIL [Suspect]
     Dosage: UNK
     Route: 041
     Dates: start: 20101215, end: 20101215
  9. FLUOROURACIL [Suspect]
     Dosage: UNK
     Route: 040
     Dates: start: 20110414, end: 20110414
  10. FLUOROURACIL [Suspect]
     Dosage: UNK
     Route: 041
     Dates: start: 20110414, end: 20110414
  11. CALCIUM LEVOFOLINATE [Concomitant]
     Indication: COLORECTAL CANCER
     Dosage: 300 MG/BODY (196.1 MG/M2)
     Route: 041
     Dates: start: 20100816, end: 20110414
  12. ERBITUX [Concomitant]
     Indication: COLORECTAL CANCER
     Dosage: 400 MG/BODY
     Route: 041
     Dates: start: 20100816, end: 20101129
  13. IRINOTECAN HCL [Suspect]
     Dosage: UNK
     Route: 041
     Dates: start: 20101109, end: 20101109
  14. FLUOROURACIL [Suspect]
     Dosage: UNK
     Route: 040
     Dates: start: 20110106, end: 20110106
  15. FLUOROURACIL [Suspect]
     Dosage: UNK
     Route: 041
     Dates: start: 20110106, end: 20110106
  16. IRINOTECAN HCL [Suspect]
     Dosage: UNK
     Route: 041
     Dates: start: 20110414, end: 20110414
  17. FLUOROURACIL [Suspect]
     Dosage: UNK
     Route: 041
     Dates: start: 20101109, end: 20101109
  18. FLUOROURACIL [Suspect]
     Dosage: UNK
     Route: 040
     Dates: start: 20110127, end: 20110127
  19. IRINOTECAN HCL [Suspect]
     Dosage: UNK
     Route: 041
     Dates: start: 20110106, end: 20110106
  20. FLUOROURACIL [Suspect]
     Dosage: UNK
     Route: 040
     Dates: start: 20101019, end: 20101019
  21. FLUOROURACIL [Suspect]
     Dosage: UNK
     Route: 040
     Dates: start: 20110218, end: 20110218
  22. FLUOROURACIL [Suspect]
     Dosage: UNK
     Route: 041
     Dates: start: 20110317, end: 20110317
  23. NAPROXEN [Concomitant]
     Dosage: UNK
     Route: 048
     Dates: start: 20110519
  24. IRINOTECAN HCL [Suspect]
     Dosage: UNK
     Route: 041
     Dates: start: 20101215, end: 20101215
  25. IRINOTECAN HCL [Suspect]
     Dosage: UNK
     Route: 041
     Dates: start: 20110317, end: 20110317
  26. FLUOROURACIL [Suspect]
     Dosage: 400 MG/BODY (261.4 MG/M2)
     Route: 040
     Dates: start: 20100922, end: 20100922
  27. FLUOROURACIL [Suspect]
     Dosage: UNK
     Route: 041
     Dates: start: 20101019, end: 20101019
  28. FLUOROURACIL [Suspect]
     Dosage: UNK
     Route: 041
     Dates: start: 20110127, end: 20110127
  29. FLUOROURACIL [Suspect]
     Dosage: UNK
     Route: 041
     Dates: start: 20110218, end: 20110218
  30. FLUOROURACIL [Suspect]
     Dosage: UNK
     Route: 040
     Dates: start: 20110317, end: 20110317
  31. LORFENAMIN [Concomitant]
     Dosage: UNK
     Dates: start: 20101130, end: 20110512
  32. WARFARIN SODIUM [Concomitant]
     Dosage: UNK
     Dates: start: 20101221, end: 20110512
  33. MEROPENEM [Concomitant]
     Dosage: UNK
     Dates: start: 20110512, end: 20110602
  34. FLUOROURACIL [Suspect]
     Dosage: UNK
     Route: 040
     Dates: start: 20101109, end: 20101109
  35. VECTIBIX [Concomitant]
     Indication: COLORECTAL CANCER
     Dosage: 300 MG/BODY
     Route: 041
     Dates: start: 20101215, end: 20110414
  36. TPN ELECTROLYTES IN PLASTIC CONTAINER [Concomitant]
     Dosage: UNK
     Dates: start: 20110512, end: 20110520
  37. INTRALIPID 20% [Concomitant]
     Dosage: UNK
     Dates: start: 20110514, end: 20110602
  38. IRINOTECAN HCL [Suspect]
     Dosage: UNK
     Route: 041
     Dates: start: 20101019, end: 20101019
  39. FLUOROURACIL [Suspect]
     Dosage: 3500 MG/BODY/D1-2 (2287.6 MG/M2/D1-2)
     Route: 041
     Dates: start: 20100816, end: 20100816
  40. FLUOROURACIL [Suspect]
     Dosage: UNK
     Route: 040
     Dates: start: 20101215, end: 20101215

REACTIONS (4)
  - HAEMOGLOBIN DECREASED [None]
  - STOMATITIS [None]
  - HAEMORRHAGE SUBCUTANEOUS [None]
  - ILEUS PARALYTIC [None]
